FAERS Safety Report 7445096-8 (Version None)
Quarter: 2011Q2

REPORT INFORMATION
  Report Type: 
  Country: None (occurrence: None)
  Receive Date: 20110429
  Receipt Date: 20100304
  Transmission Date: 20111010
  Serious: Yes (Death, Other)
  Sender: FDA-Public Use
  Company Number: US-BAYER-201015308NA

PATIENT
  Age: 72 Year
  Sex: Male
  Weight: 72.562 kg

DRUGS (3)
  1. TRASYLOL [Suspect]
     Indication: CORONARY ARTERY BYPASS
     Dates: start: 19970305
  2. TRASYLOL [Suspect]
     Indication: CAROTID ENDARTERECTOMY
  3. TRASYLOL [Suspect]
     Indication: AORTIC VALVE REPAIR

REACTIONS (7)
  - RENAL FAILURE ACUTE [None]
  - RENAL FAILURE [None]
  - MYOCARDIAL INFARCTION [None]
  - PAIN [None]
  - CEREBROVASCULAR ACCIDENT [None]
  - INJURY [None]
  - DEATH [None]
